FAERS Safety Report 4776768-1 (Version None)
Quarter: 2005Q3

REPORT INFORMATION
  Report Type: 
  Country: None (occurrence: None)
  Receive Date: 20050923
  Receipt Date: 20050826
  Transmission Date: 20060218
  Serious: Yes (Hospitalization)
  Sender: FDA-Public Use
  Company Number: US-BOEHRINGER INGELHEIM PHARMACEUTICALS, INC.-2005-BP-15088BP

PATIENT
  Sex: Female
  Weight: 73.5 kg

DRUGS (4)
  1. TIPRANAVIR / RITONAVIR CAPSULES [Suspect]
     Indication: HIV INFECTION
     Route: 048
  2. FUZEON [Concomitant]
     Indication: HIV INFECTION
     Route: 058
     Dates: start: 20041215
  3. TRUVADA [Concomitant]
     Indication: HIV INFECTION
     Dosage: 300/200
     Route: 048
     Dates: start: 20041215
  4. FOSCARNET [Concomitant]
     Indication: HERPES VIRUS INFECTION
     Route: 042
     Dates: start: 20050525, end: 20050613

REACTIONS (2)
  - CATHETER RELATED INFECTION [None]
  - ENTEROBACTER INFECTION [None]
